FAERS Safety Report 5067924-6 (Version None)
Quarter: 2006Q3

REPORT INFORMATION
  Report Type: 
  Country: None (occurrence: None)
  Receive Date: 20060731
  Receipt Date: 20060711
  Transmission Date: 20061208
  Serious: Yes (Hospitalization)
  Sender: FDA-Public Use
  Company Number: 163-20785-05110192

PATIENT
  Age: 74 Year
  Sex: Female
  Weight: 78.0187 kg

DRUGS (7)
  1. THALOMID [Suspect]
     Indication: MULTIPLE MYELOMA
     Dosage: 200 MG, 1 IN 1 D, ORAL
     Route: 048
     Dates: start: 20050908, end: 20050921
  2. DECADRON [Suspect]
     Indication: MULTIPLE MYELOMA
     Dates: start: 20050908, end: 20050921
  3. VELCADE [Suspect]
     Indication: MULTIPLE MYELOMA
  4. CYANOCOBALAMIN [Concomitant]
  5. PROCRIT [Concomitant]
  6. MORPHINE SULFATE [Concomitant]
  7. ZOMETA [Concomitant]

REACTIONS (21)
  - ANAEMIA [None]
  - ASTHENIA [None]
  - CONSTIPATION [None]
  - DIZZINESS [None]
  - DRUG INEFFECTIVE [None]
  - DYSPNOEA [None]
  - EXTRAVASATION [None]
  - FATIGUE [None]
  - FEELING ABNORMAL [None]
  - HERPES SIMPLEX [None]
  - MALAISE [None]
  - MOBILITY DECREASED [None]
  - MUSCLE ABSCESS [None]
  - PALLOR [None]
  - PERFORMANCE STATUS DECREASED [None]
  - PROCEDURAL COMPLICATION [None]
  - SOMNOLENCE [None]
  - STAPHYLOCOCCAL SEPSIS [None]
  - THROMBOCYTOPENIA [None]
  - URINARY TRACT INFECTION [None]
  - WEIGHT DECREASED [None]
